FAERS Safety Report 4393835-5 (Version None)
Quarter: 2004Q3

REPORT INFORMATION
  Report Type: 
  Country: None (occurrence: None)
  Receive Date: 20040706
  Receipt Date: 20040624
  Transmission Date: 20050211
  Serious: Yes (Life-Threatening, Disabling)
  Sender: FDA-Public Use
  Company Number: 2004-117887-NL

PATIENT
  Age: 6 Month
  Sex: Male

DRUGS (4)
  1. VECURONIUM BROMIDE [Suspect]
     Indication: HYPOTONIA
  2. FENTANYL [Suspect]
     Indication: GENERAL ANAESTHESIA
  3. MIDAZOLAM HCL [Suspect]
     Indication: GENERAL ANAESTHESIA
  4. SEVOFLURANE [Suspect]
     Indication: GENERAL ANAESTHESIA

REACTIONS (7)
  - ACIDOSIS [None]
  - BLOOD POTASSIUM INCREASED [None]
  - CARDIAC ARREST [None]
  - DEVELOPMENTAL DELAY [None]
  - HYPERTHERMIA MALIGNANT [None]
  - MYOGLOBIN URINE PRESENT [None]
  - RESPIRATORY DISORDER [None]
